FAERS Safety Report 5520516-4 (Version None)
Quarter: 2007Q4

REPORT INFORMATION
  Report Type: 
  Country: None (occurrence: None)
  Receive Date: 20071119
  Receipt Date: 20071106
  Transmission Date: 20080405
  Serious: Yes (Hospitalization)
  Sender: FDA-Public Use
  Company Number: US-PFIZER INC-2007092799

PATIENT
  Age: 70 Year
  Sex: Male
  Weight: 103.6 kg

DRUGS (1)
  1. SUTENT [Suspect]
     Indication: FOLLICULAR THYROID CANCER
     Route: 048

REACTIONS (1)
  - PNEUMONITIS [None]
